FAERS Safety Report 9921954 (Version 1)
Quarter: 2014Q1

REPORT INFORMATION
  Report Type: Spontaneous
  Country: US (occurrence: US)
  Receive Date: 20140225
  Receipt Date: 20140225
  Transmission Date: 20141002
  Serious: Yes (Other)
  Sender: FDA-Public Use
  Company Number: US-BAYER-2014-025176

PATIENT
  Sex: Male

DRUGS (2)
  1. RID SHAMPOO [Suspect]
     Indication: LICE INFESTATION
     Dosage: UNK
     Dates: start: 2012
  2. RID SHAMPOO [Suspect]
     Indication: LICE INFESTATION
     Dosage: DAY 1 AND 10
     Dates: start: 201401

REACTIONS (5)
  - Dyspnoea [None]
  - Chest pain [None]
  - Oropharyngeal discomfort [None]
  - Pruritus generalised [None]
  - Eye irritation [None]
